FAERS Safety Report 5828984-5 (Version None)
Quarter: 2008Q3

REPORT INFORMATION
  Report Type: 
  Country: None (occurrence: None)
  Receive Date: 20080731
  Receipt Date: 20080723
  Transmission Date: 20090109
  Serious: Yes (Hospitalization, Other)
  Sender: FDA-Public Use
  Company Number: PHBS2008FR05213

PATIENT

DRUGS (2)
  1. OXYTOCIN [Suspect]
     Indication: POSTPARTUM HAEMORRHAGE
     Route: 042
  2. SULPROSTONE [Suspect]
     Indication: POSTPARTUM HAEMORRHAGE

REACTIONS (10)
  - ANAEMIA [None]
  - BODY TEMPERATURE INCREASED [None]
  - COMPUTERISED TOMOGRAM ABNORMAL [None]
  - DISSEMINATED INTRAVASCULAR COAGULATION [None]
  - GENITAL HAEMORRHAGE [None]
  - HYSTERECTOMY [None]
  - NECROSIS ISCHAEMIC [None]
  - SEPSIS [None]
  - UTERINE ATONY [None]
  - UTERINE DISORDER [None]
